FAERS Safety Report 4282310-4 (Version None)
Quarter: 2004Q1

REPORT INFORMATION
  Report Type: 
  Country: None (occurrence: None)
  Receive Date: 20040108
  Receipt Date: 20030725
  Transmission Date: 20041129
  Serious: Yes (Disabling, Other)
  Sender: FDA-Public Use
  Company Number: HQWYE244728JUL03

PATIENT
  Sex: Female

DRUGS (1)
  1. PREMPRO [Suspect]
     Dosage: ORAL  SEE IMAGE
     Route: 048
     Dates: start: 20010718

REACTIONS (1)
  - BREAST CANCER FEMALE [None]
